FAERS Safety Report 5710063-9 (Version None)
Quarter: 2008Q2

REPORT INFORMATION
  Report Type: 
  Country: None (occurrence: None)
  Receive Date: 20080418
  Receipt Date: 20071221
  Transmission Date: 20081010
  Serious: No
  Sender: FDA-Public Use
  Company Number: US-ASTRAZENECA-2007UW23294

PATIENT
  Sex: Male

DRUGS (1)
  1. TOPROL-XL [Suspect]
     Indication: BLOOD PRESSURE
     Dosage: 1 PILL IN AM AND 1/2 IN PM
     Route: 048
     Dates: start: 20060901

REACTIONS (5)
  - ABNORMAL SENSATION IN EYE [None]
  - EAR DISCOMFORT [None]
  - ERYTHEMA [None]
  - HEADACHE [None]
  - PHARMACEUTICAL PRODUCT COMPLAINT [None]
